FAERS Safety Report 7527559-X (Version None)
Quarter: 2011Q2

REPORT INFORMATION
  Report Type: 
  Country: None (occurrence: None)
  Receive Date: 20110527
  Receipt Date: 20110517
  Transmission Date: 20111010
  Serious: No
  Sender: FDA-Public Use
  Company Number: LTI2011A00124

PATIENT

DRUGS (1)
  1. PIOGLITAZONE HYDROCHLORIDE AND METFORMIN HYDROCHLORIDE [Suspect]
     Indication: TYPE 2 DIABETES MELLITUS
     Dosage: (1 D) ORAL
     Route: 048
     Dates: start: 20090101, end: 20110101

REACTIONS (3)
  - PROSTATE CANCER METASTATIC [None]
  - METASTASES TO URINARY TRACT [None]
  - METASTASES TO BLADDER [None]
